FAERS Safety Report 24885150 (Version 1)
Quarter: 2025Q1

REPORT INFORMATION
  Report Type: Spontaneous
  Country: US (occurrence: US)
  Receive Date: 20250124
  Receipt Date: 20250124
  Transmission Date: 20250409
  Serious: No
  Sender: PFIZER
  Company Number: US-PFIZER INC-PV202500009185

PATIENT

DRUGS (2)
  1. EUCRISA [Suspect]
     Active Substance: CRISABOROLE
  2. TACROLIMUS [Suspect]
     Active Substance: TACROLIMUS

REACTIONS (2)
  - Condition aggravated [Unknown]
  - Discomfort [Unknown]
